FAERS Safety Report 16467445 (Version 1)
Quarter: 2019Q2

REPORT INFORMATION
  Report Type: Spontaneous
  Country: DE (occurrence: DE)
  Receive Date: 20190624
  Receipt Date: 20190624
  Transmission Date: 20190711
  Serious: Yes (Life-Threatening, Other)
  Sender: FDA-Public Use
  Company Number: DE-AUROBINDO-AUR-APL-2019-035601

PATIENT

DRUGS (1)
  1. ENTACAPON [Suspect]
     Active Substance: ENTACAPONE
     Indication: PARKINSON^S DISEASE
     Dosage: UNK
     Route: 065

REACTIONS (4)
  - Orthostatic hypotension [Unknown]
  - Hypokalaemia [Unknown]
  - Diarrhoea [Unknown]
  - Loss of consciousness [Unknown]
